FAERS Safety Report 4286026-X (Version None)
Quarter: 2004Q1

REPORT INFORMATION
  Report Type: 
  Country: None (occurrence: None)
  Receive Date: 20040203
  Receipt Date: 20040122
  Transmission Date: 20041129
  Serious: Yes (Death)
  Sender: FDA-Public Use
  Company Number: 2004-DE-00374GD (0)

PATIENT
  Age: 6 Week
  Sex: Male

DRUGS (2)
  1. DIPYRIDAMOLE [Suspect]
     Indication: HAEMANGIOMA-THROMBOCYTOPENIA SYNDROME
     Dosage: 5 MG/KG/DAY PO
     Route: 048
  2. PREDNISOLONE [Suspect]
     Dosage: 3 MG/KG/DAY PO
     Route: 048

REACTIONS (6)
  - CUSHINGOID [None]
  - DRUG INEFFECTIVE [None]
  - HYPERTENSION [None]
  - MASS [None]
  - PNEUMONIA ASPIRATION [None]
  - SEPSIS [None]
